FAERS Safety Report 5648526-7 (Version None)
Quarter: 2008Q1

REPORT INFORMATION
  Report Type: 
  Country: None (occurrence: None)
  Receive Date: 20080229
  Receipt Date: 20080213
  Transmission Date: 20080703
  Serious: Yes (Hospitalization)
  Sender: FDA-Public Use
  Company Number: S08-FRA-00698-01

PATIENT
  Age: 77 Year
  Sex: Male

DRUGS (7)
  1. ESCITALOPRAM [Suspect]
     Indication: BIPOLAR DISORDER
     Dates: end: 20070404
  2. EPINITRIL          (GLYCERYL TRINITRATE) [Suspect]
     Indication: CORONARY ARTERY INSUFFICIENCY
     Dates: end: 20070401
  3. THERALENE              (ALIMEMAZINE TARTRATE) [Suspect]
     Indication: BIPOLAR DISORDER
     Dosage: 15 DROPS QD PO
     Route: 048
  4. ATENOLOL [Suspect]
     Indication: HYPERTENSION
     Dosage: 50 MG QD PO
     Route: 048
  5. DEPAKOTE [Suspect]
     Indication: BIPOLAR DISORDER
     Dosage: 1.25 G QD PO
     Route: 048
  6. ASPIRIN [Concomitant]
  7. CLONAZEPAM [Concomitant]

REACTIONS (6)
  - FACIAL BONES FRACTURE [None]
  - FALL [None]
  - MALAISE [None]
  - OBSESSIVE-COMPULSIVE DISORDER [None]
  - ORTHOSTATIC HYPOTENSION [None]
  - PSEUDODEMENTIA [None]
